FAERS Safety Report 9790140 (Version 1)
Quarter: 2013Q4

REPORT INFORMATION
  Report Type: Spontaneous
  Country: DK (occurrence: CH)
  Receive Date: 20131231
  Receipt Date: 20131231
  Transmission Date: 20140711
  Serious: Yes (Hospitalization)
  Sender: FDA-Public Use
  Company Number: CH-FRI-1000052484

PATIENT
  Sex: Male

DRUGS (15)
  1. ESCITALOPRAM [Suspect]
     Indication: DEPRESSION
     Dosage: 10 MG
     Route: 048
     Dates: end: 201311
  2. URISPAS [Suspect]
     Indication: CHOLINERGIC SYNDROME
     Dosage: 200 MG
     Route: 048
     Dates: start: 20130926, end: 20131108
  3. URISPAS [Suspect]
     Indication: CHOLINERGIC SYNDROME
     Dosage: 400 MG
     Route: 048
     Dates: start: 20131108, end: 20131119
  4. TASMAR [Suspect]
     Indication: PARKINSON^S DISEASE
     Dosage: 200 MG
     Route: 048
     Dates: end: 201311
  5. MOTILIUM [Suspect]
     Indication: NAUSEA
     Dosage: 40 MG
     Route: 048
     Dates: end: 201311
  6. MOTILIUM [Suspect]
     Indication: VOMITING
  7. TRANSIPEG [Suspect]
  8. BECOSYM FORTE [Concomitant]
  9. EXELON PATCH [Concomitant]
  10. GUTRON [Concomitant]
  11. MADOPAR [Concomitant]
  12. REMERON [Concomitant]
  13. RIVOTRIL [Concomitant]
  14. SEROQUEL [Concomitant]
  15. SINEMET CR [Concomitant]

REACTIONS (2)
  - Jaundice [Recovered/Resolved]
  - Cholestatic liver injury [Recovering/Resolving]
